FAERS Safety Report 9281146 (Version 1)
Quarter: 2013Q2

REPORT INFORMATION
  Report Type: Spontaneous
  Country: US (occurrence: None)
  Receive Date: 20130502
  Receipt Date: 20130502
  Transmission Date: 20140414
  Serious: Yes (Other)
  Sender: FDA-Public Use
  Company Number: 2013-UK-0061

PATIENT
  Sex: Female

DRUGS (2)
  1. ABSTRAL [Suspect]
     Indication: WOUND TREATMENT
     Dosage: DOSE INCREASED 200 MCG SUBLINGUAL??
     Route: 060
  2. ABSTRAL [Suspect]
     Indication: OFF LABEL USE
     Dosage: DOSE INCREASED 200 MCG SUBLINGUAL??
     Route: 060

REACTIONS (3)
  - Nausea [None]
  - Vomiting [None]
  - Off label use [None]
